FAERS Safety Report 6565371-9 (Version None)
Quarter: 2010Q1

REPORT INFORMATION
  Report Type: 
  Country: None (occurrence: None)
  Receive Date: 20100201
  Receipt Date: 20100129
  Transmission Date: 20100710
  Serious: Yes (Other)
  Sender: FDA-Public Use
  Company Number: GXKR2010DE01254

PATIENT
  Age: 60 Year
  Sex: Male

DRUGS (10)
  1. AMLODIPIN HEXAL (NGX) [Suspect]
     Dosage: UNK
     Route: 048
     Dates: start: 20100101
  2. SORTIS ^GOEDECKE^ [Concomitant]
     Route: 048
  3. BISOPROLOL [Concomitant]
     Route: 048
  4. TAMSULOSIN [Concomitant]
     Route: 048
  5. PENTAERYTHRITOL TETRANITRATE [Concomitant]
     Route: 048
  6. RAMIPRIL [Concomitant]
     Route: 048
  7. ACETYLSALICYLIC ACID [Concomitant]
     Route: 048
  8. TORASEMIDE [Concomitant]
     Route: 048
  9. OMEPRAZOLE [Concomitant]
     Route: 048
  10. COMBIGAN [Concomitant]
     Route: 048

REACTIONS (2)
  - CATARACT [None]
  - VISUAL IMPAIRMENT [None]
